FAERS Safety Report 5169716-6 (Version None)
Quarter: 2006Q4

REPORT INFORMATION
  Report Type: 
  Country: None (occurrence: None)
  Receive Date: 20061212
  Receipt Date: 20060322
  Transmission Date: 20070319
  Serious: Yes (Hospitalization, Other)
  Sender: FDA-Public Use
  Company Number: PHHO2006GB04720

PATIENT
  Age: 39 Year
  Sex: Female
  Weight: 58 kg

DRUGS (10)
  1. ZOLEDRONIC ACID [Suspect]
     Indication: METASTASES TO BONE
     Dosage: 4 MG, UNK
     Route: 042
     Dates: start: 20040610, end: 20060110
  2. VITAMIN D [Concomitant]
  3. CALCIUM [Concomitant]
  4. EPIRUBICIN [Concomitant]
     Indication: BREAST CANCER
     Dates: start: 20040610, end: 20041221
  5. CYCLOPHOSPHAMIDE [Concomitant]
     Indication: BREAST CANCER
     Dates: start: 20040610, end: 20041221
  6. METHOTREXATE [Concomitant]
     Indication: BREAST CANCER
     Dates: start: 20040610, end: 20041221
  7. FLUOROURACIL [Concomitant]
     Indication: BREAST CANCER
     Dates: start: 20040610, end: 20041221
  8. GLICLAZIDE [Concomitant]
  9. TAMOXIFEN CITRATE [Concomitant]
     Dosage: 20 MG, QD
     Route: 048
     Dates: start: 20050112
  10. SIMVASTATIN [Concomitant]
     Dosage: UNK MG, UNK
     Route: 048

REACTIONS (9)
  - BACTERIAL INFECTION [None]
  - BONE TRIMMING [None]
  - FUNGAL INFECTION [None]
  - IMPAIRED HEALING [None]
  - INFLAMMATION [None]
  - OSTEOMYELITIS [None]
  - OSTEONECROSIS [None]
  - SEQUESTRECTOMY [None]
  - TOOTH EXTRACTION [None]
